FAERS Safety Report 9891357 (Version 2)
Quarter: 2014Q2

REPORT INFORMATION
  Report Type: Spontaneous
  Country: US (occurrence: US)
  Receive Date: 20140212
  Receipt Date: 20140502
  Transmission Date: 20141212
  Serious: No
  Sender: FDA-Public Use
  Company Number: US-PFIZER INC-2014039482

PATIENT
  Age: 59 Year
  Sex: Female
  Weight: 77.1 kg

DRUGS (17)
  1. CHANTIX [Suspect]
     Indication: SMOKING CESSATION THERAPY
     Dosage: 0.5 MG, 1X/DAY
     Route: 048
     Dates: start: 2009
  2. ARMOUR THYROID [Concomitant]
     Dosage: UNK
  3. METFORMIN [Concomitant]
     Dosage: UNK
  4. GLIMEPIRIDE [Concomitant]
     Dosage: UNK
  5. PRAVASTATIN [Concomitant]
     Dosage: UNK
  6. ATENOLOL [Concomitant]
     Dosage: UNK
  7. MICARDIS [Concomitant]
     Dosage: UNK
  8. FLUOXETINE [Concomitant]
     Dosage: UNK
  9. PANTOPRAZOLE [Concomitant]
     Dosage: UNK
  10. VENTOLIN [Concomitant]
     Dosage: UNK
  11. LORATADINE [Concomitant]
     Dosage: UNK
  12. GABAPENTIN [Concomitant]
     Dosage: UNK
  13. MELOXICAM [Concomitant]
     Dosage: UNK
  14. CALCIUM [Concomitant]
     Dosage: UNK
  15. VICTOZA [Concomitant]
  16. NOVOLOG [Concomitant]
     Dosage: UNK
  17. COLACE [Concomitant]
     Dosage: UNK

REACTIONS (1)
  - Blood glucose abnormal [Unknown]
